FAERS Safety Report 4405426-8 (Version None)
Quarter: 2004Q3

REPORT INFORMATION
  Report Type: 
  Country: None (occurrence: None)
  Receive Date: 20040723
  Receipt Date: 20030821
  Transmission Date: 20050211
  Serious: No
  Sender: FDA-Public Use
  Company Number: US-GLAXOSMITHKLINE-A0422905A

PATIENT
  Age: 80 Year
  Sex: Female

DRUGS (8)
  1. AVANDIA [Suspect]
     Dosage: 4MG TWICE PER DAY
     Route: 048
     Dates: start: 20030720
  2. GLUCOPHAGE [Concomitant]
     Dosage: 500MG PER DAY
  3. GLUCOTROL [Concomitant]
  4. CARTIA [Concomitant]
  5. HYDROCHLOROTHIAZIDE [Concomitant]
     Dosage: 12MG PER DAY
     Route: 048
  6. DIOVAN [Concomitant]
     Dosage: 80MG PER DAY
  7. ZOCOR [Concomitant]
  8. SINGULAIR [Concomitant]

REACTIONS (1)
  - OEDEMA PERIPHERAL [None]
